FAERS Safety Report 10606535 (Version 1)
Quarter: 2014Q4

REPORT INFORMATION
  Report Type: Spontaneous
  Country: US (occurrence: None)
  Receive Date: 20141124
  Receipt Date: 20141124
  Transmission Date: 20150529
  Serious: No
  Sender: FDA-Public Use
  Company Number: None

PATIENT
  Age: 69 Year
  Sex: Female
  Weight: 49.9 kg

DRUGS (1)
  1. RESTASIS [Suspect]
     Active Substance: CYCLOSPORINE
     Indication: DRY EYE
     Dosage: 1 DROP
     Route: 047
     Dates: start: 20141119, end: 20141121

REACTIONS (3)
  - Eyelid oedema [None]
  - Lacrimation increased [None]
  - Eye irritation [None]

NARRATIVE: CASE EVENT DATE: 20141114
